FAERS Safety Report 18253628 (Version 1)
Quarter: 2020Q3

REPORT INFORMATION
  Report Type: Spontaneous
  Country: CA (occurrence: CA)
  Receive Date: 20200910
  Receipt Date: 20200910
  Transmission Date: 20201103
  Serious: Yes (Other)
  Sender: FDA-Public Use
  Company Number: CA-PFIZER INC-2020347859

PATIENT
  Sex: Female

DRUGS (23)
  1. PREGABALIN. [Suspect]
     Active Substance: PREGABALIN
     Dosage: 50 MG, 3X/DAY
     Route: 065
  2. COSENTYX [Suspect]
     Active Substance: SECUKINUMAB
     Dosage: 150 MG, MONTHLY
     Route: 065
  3. MAGNESIUM CITRATE. [Concomitant]
     Active Substance: MAGNESIUM CITRATE
     Dosage: UNK
     Route: 065
  4. PARIET [Concomitant]
     Active Substance: RABEPRAZOLE SODIUM
     Dosage: 20 MG, 1X/DAY
     Route: 065
  5. SECUKINUMAB. [Suspect]
     Active Substance: SECUKINUMAB
     Dosage: 150 MG
     Route: 065
  6. CALCIUM D?PANTOTHENATE;PYRIDOXINE HYDROCHLORIDE;RIBOFLAVIN;NICOTINAMID [Concomitant]
     Dosage: UNK, 1X/DAY
     Route: 065
  7. BUPRENORPHINE. [Concomitant]
     Active Substance: BUPRENORPHINE
     Dosage: 5 UG, WEEKLY
     Route: 065
  8. METHOTREXATE. [Concomitant]
     Active Substance: METHOTREXATE
     Indication: ANKYLOSING SPONDYLITIS
     Dosage: 25 MG, WEEKLY
     Route: 065
  9. TYLENOL [Concomitant]
     Active Substance: ACETAMINOPHEN
     Dosage: UNK
     Route: 065
  10. VITAMIN D3 [Concomitant]
     Active Substance: CHOLECALCIFEROL
     Dosage: 5000 IU, 1X/DAY
     Route: 065
  11. SECUKINUMAB. [Suspect]
     Active Substance: SECUKINUMAB
     Dosage: 150 MG, MONTHLY
     Route: 065
  12. TRANDOLAPRIL. [Concomitant]
     Active Substance: TRANDOLAPRIL
     Dosage: 2 MG, 1X/DAY
     Route: 065
  13. HUMIRA [Suspect]
     Active Substance: ADALIMUMAB
     Indication: ANKYLOSING SPONDYLITIS
     Dosage: UNK
     Route: 058
  14. MOMETASONE [Concomitant]
     Active Substance: MOMETASONE
     Dosage: UNK, 2X/DAY
     Route: 065
  15. VITAMIN B12 [Concomitant]
     Active Substance: CYANOCOBALAMIN
     Dosage: 2500 MG, ALTERNATE DAY
     Route: 065
  16. ACETAMINOPHEN W/OXYCODONE [Concomitant]
     Active Substance: ACETAMINOPHEN\OXYCODONE HYDROCHLORIDE
     Indication: PAIN
     Dosage: UNK
     Route: 048
  17. OXYCODONE HYDROCHLORIDE/OXYCODONE TEREPHTHALATE/PARACETAMOL [Concomitant]
     Active Substance: ACETAMINOPHEN\OXYCODONE HYDROCHLORIDE\OXYCODONE TEREPHTHALATE
     Dosage: UNK
     Route: 065
  18. DULOXETINE. [Concomitant]
     Active Substance: DULOXETINE
     Dosage: 60 MG, 1X/DAY
     Route: 065
  19. DULOXETINE. [Concomitant]
     Active Substance: DULOXETINE
     Dosage: UNK
     Route: 065
  20. FOLIC ACID. [Concomitant]
     Active Substance: FOLIC ACID
     Dosage: 5 MG, 1X/DAY
     Route: 065
  21. RANITIDINE. [Concomitant]
     Active Substance: RANITIDINE
     Dosage: 300 MG
     Route: 048
  22. TRAZODONE [Concomitant]
     Active Substance: TRAZODONE HYDROCHLORIDE
     Dosage: 50 MG
     Route: 065
  23. WELLBUTRIN XL [Concomitant]
     Active Substance: BUPROPION HYDROCHLORIDE
     Dosage: 150 MG, 1X/DAY
     Route: 065

REACTIONS (42)
  - Suicidal ideation [Unknown]
  - Arthralgia [Unknown]
  - Asthenia [Unknown]
  - Contusion [Unknown]
  - Decreased interest [Unknown]
  - Dorsal ramus syndrome [Unknown]
  - Fibromyalgia [Unknown]
  - Focal segmental glomerulosclerosis [Unknown]
  - Loss of personal independence in daily activities [Unknown]
  - Menopause [Unknown]
  - Musculoskeletal stiffness [Unknown]
  - Spondyloarthropathy [Unknown]
  - Depressed mood [Unknown]
  - Metaplasia [Unknown]
  - Ankylosing spondylitis [Unknown]
  - Back pain [Unknown]
  - Hyperaesthesia [Unknown]
  - Night sweats [Unknown]
  - Rash erythematous [Unknown]
  - Renal impairment [Unknown]
  - Drug ineffective [Unknown]
  - Joint ankylosis [Unknown]
  - Pain in extremity [Unknown]
  - Therapeutic response shortened [Unknown]
  - Arthropathy [Unknown]
  - Gastrooesophageal reflux disease [Unknown]
  - HLA-B*27 positive [Unknown]
  - Dyspnoea [Unknown]
  - Gait disturbance [Unknown]
  - Grip strength decreased [Unknown]
  - Hypertension [Unknown]
  - Inflammation [Unknown]
  - Sleep apnoea syndrome [Unknown]
  - Depression [Unknown]
  - Fatigue [Unknown]
  - Intervertebral disc degeneration [Unknown]
  - Joint swelling [Unknown]
  - Pain [Unknown]
  - Spondylitis [Unknown]
  - Weight increased [Unknown]
  - Joint range of motion decreased [Unknown]
  - Peripheral swelling [Unknown]
